FAERS Safety Report 6941903-3 (Version None)
Quarter: 2010Q3

REPORT INFORMATION
  Report Type: 
  Country: None (occurrence: None)
  Receive Date: 20100823
  Receipt Date: 20100817
  Transmission Date: 20110219
  Serious: Yes (Other)
  Sender: FDA-Public Use
  Company Number: 20109155

PATIENT
  Age: 51 Year
  Sex: Female

DRUGS (1)
  1. LIORESAL [Suspect]
     Indication: MUSCLE SPASTICITY
     Dosage: MCG, DAILY, INTRATHECAL
     Route: 037

REACTIONS (7)
  - ACTIVITIES OF DAILY LIVING IMPAIRED [None]
  - CONDITION AGGRAVATED [None]
  - DEVICE LEAKAGE [None]
  - IMPLANT SITE HAEMATOMA [None]
  - MUSCLE SPASTICITY [None]
  - POST PROCEDURAL CONSTIPATION [None]
  - URINARY TRACT INFECTION [None]
